FAERS Safety Report 9310640 (Version 5)
Quarter: 2013Q4

REPORT INFORMATION
  Report Type: Spontaneous
  Country: AU (occurrence: AU)
  Receive Date: 20130527
  Receipt Date: 20131003
  Transmission Date: 20140711
  Serious: Yes (Other)
  Sender: FDA-Public Use
  Company Number: AU-UCBSA-086328

PATIENT
  Sex: Male

DRUGS (12)
  1. NEUPRO [Suspect]
     Indication: PARKINSON^S DISEASE
     Dosage: UNKNOWN DOSE
     Route: 062
     Dates: start: 20130501, end: 201305
  2. NEUPRO [Interacting]
     Indication: PARKINSON^S DISEASE
     Route: 062
     Dates: start: 201305, end: 201305
  3. NEUPRO [Interacting]
     Indication: PARKINSON^S DISEASE
     Route: 062
     Dates: start: 20130625
  4. MADOPAR [Interacting]
     Indication: PARKINSON^S DISEASE
     Dosage: UNKNOWN DOSE
     Route: 062
  5. MADOPAR [Interacting]
     Indication: PARKINSON^S DISEASE
     Dosage: DAILY DOSE: 8 DOSAGE FORMS, 200 MG/50 MG, TITRATED DOSE DAILY IN DIVIDED DOSES
     Route: 062
  6. TOFRANIL [Interacting]
     Indication: DEPRESSION
     Dosage: DOSE DECREASED PRIOR TO RECOMMENCING NEUPRO
     Route: 048
     Dates: end: 20130625
  7. TOFRANIL [Interacting]
     Indication: DEPRESSION
     Dosage: DOSE DECREASE PRIOR TO STARTING NEUPRO
     Route: 048
  8. DIAZEPAM [Interacting]
     Route: 048
  9. MAGNESIUM [Concomitant]
     Indication: MUSCLE SPASMS
     Dosage: UNKNOWN DOSE
     Route: 048
  10. NEXIUM [Concomitant]
     Dosage: UNKNOWN DOSE
     Route: 048
  11. VOLTAREN [Concomitant]
     Dosage: UNKNOWN DOSE
     Route: 048
  12. PANADEINE FORTE [Concomitant]
     Dosage: UNKNOWN DOSE
     Route: 048

REACTIONS (3)
  - Serotonin syndrome [Recovered/Resolved]
  - Drug interaction [Recovered/Resolved]
  - Muscle spasms [Not Recovered/Not Resolved]
